FAERS Safety Report 5058150-5 (Version None)
Quarter: 2006Q3

REPORT INFORMATION
  Report Type: 
  Country: None (occurrence: None)
  Receive Date: 20060721
  Receipt Date: 20060717
  Transmission Date: 20061208
  Serious: Yes (Hospitalization)
  Sender: FDA-Public Use
  Company Number: GB-MERCK-0607GBR00078

PATIENT
  Age: 71 Year
  Sex: Female

DRUGS (1)
  1. ZETIA [Suspect]
     Route: 048
     Dates: start: 20050801, end: 20060619

REACTIONS (2)
  - STEATORRHOEA [None]
  - TREATMENT NONCOMPLIANCE [None]
